FAERS Safety Report 8947796 (Version 1)
Quarter: 2012Q4

REPORT INFORMATION
  Report Type: Spontaneous
  Country: US (occurrence: None)
  Receive Date: 20121203
  Receipt Date: 20121203
  Transmission Date: 20130627
  Serious: No
  Sender: FDA-Public Use
  Company Number: None

PATIENT
  Age: 57 Year
  Sex: Female
  Weight: 72.7 kg

DRUGS (1)
  1. IOPAMIDOL [Suspect]
     Indication: COMPUTERISED TOMOGRAM
     Dates: start: 20121130, end: 20121130

REACTIONS (7)
  - Pruritus [None]
  - Hypotension [None]
  - Sepsis [None]
  - Tachycardia [None]
  - Cardio-respiratory arrest [None]
  - Anaphylactic reaction [None]
  - Urticaria [None]
